FAERS Safety Report 4506385-X (Version None)
Quarter: 2004Q4

REPORT INFORMATION
  Report Type: 
  Country: None (occurrence: None)
  Receive Date: 20041025
  Receipt Date: 20031119
  Transmission Date: 20050328
  Serious: Yes (Other)
  Sender: FDA-Public Use
  Company Number: US-JNJFOC-20030901793

PATIENT
  Age: 66 Year
  Sex: Female
  Weight: 63.9572 kg

DRUGS (13)
  1. REMICADE [Suspect]
     Indication: RHEUMATOID ARTHRITIS
     Dosage: INTRAVENOUS;  300 MG, INTRAVENOUS;  600 MG, INTRAVENOUS
     Route: 042
     Dates: start: 20021003
  2. REMICADE [Suspect]
     Indication: RHEUMATOID ARTHRITIS
     Dosage: INTRAVENOUS;  300 MG, INTRAVENOUS;  600 MG, INTRAVENOUS
     Route: 042
     Dates: start: 20030430
  3. REMICADE [Suspect]
     Indication: RHEUMATOID ARTHRITIS
     Dosage: INTRAVENOUS;  300 MG, INTRAVENOUS;  600 MG, INTRAVENOUS
     Route: 042
     Dates: start: 20030523
  4. REMICADE [Suspect]
  5. METHOTREXATE [Concomitant]
  6. INSULIN [Concomitant]
  7. PREDNISONE [Concomitant]
  8. FOLIC ACID [Concomitant]
  9. METOPROLOL TARTRATE [Concomitant]
  10. FOSAMAX [Concomitant]
  11. PREMARIN [Concomitant]
  12. ZOCOR [Concomitant]
  13. OSTEOBIFLEX (OSTEO BI-FLEX) [Concomitant]

REACTIONS (5)
  - BASAL CELL CARCINOMA [None]
  - HISTOPLASMOSIS [None]
  - MYCOBACTERIUM CHELONEI INFECTION [None]
  - THERAPEUTIC RESPONSE DECREASED [None]
  - TOOTH INFECTION [None]
